FAERS Safety Report 5773062-7 (Version None)
Quarter: 2008Q2

REPORT INFORMATION
  Report Type: 
  Country: None (occurrence: None)
  Receive Date: 20080611
  Receipt Date: 20080508
  Transmission Date: 20081010
  Serious: Yes (Death)
  Sender: FDA-Public Use
  Company Number: 2008AL004226

PATIENT
  Age: 64 Year
  Sex: Male

DRUGS (2)
  1. DIGOXIN [Suspect]
     Indication: MYOCARDIAL INFARCTION
     Dates: start: 19990101, end: 20080131
  2. MORPHINE [Concomitant]

REACTIONS (1)
  - DEATH [None]
